FAERS Safety Report 8539682-1 (Version None)
Quarter: 2012Q3

REPORT INFORMATION
  Report Type: 
  Country: None (occurrence: None)
  Receive Date: 20120726
  Receipt Date: 20111021
  Transmission Date: 20120928
  Serious: No
  Sender: FDA-Public Use
  Company Number: US-ASTRAZENECA-2008UW16832

PATIENT
  Age: 35 Year
  Sex: Female
  Weight: 51.7 kg

DRUGS (1)
  1. SEROQUEL [Suspect]
     Indication: DEPRESSION
     Route: 048
     Dates: start: 20090101, end: 20100101

REACTIONS (4)
  - WEIGHT INCREASED [None]
  - AMNESIA [None]
  - SCHIZOPHRENIA [None]
  - DIABETES MELLITUS [None]
